FAERS Safety Report 9969926 (Version 1)
Quarter: 2014Q1

REPORT INFORMATION
  Report Type: Spontaneous
  Country: US (occurrence: US)
  Receive Date: 20140306
  Receipt Date: 20140306
  Transmission Date: 20141002
  Serious: No
  Sender: FDA-Public Use
  Company Number: US-SANOFI-AVENTIS-2013SA030742

PATIENT
  Sex: Female

DRUGS (1)
  1. GAVISCON [Suspect]

REACTIONS (1)
  - Flatulence [Unknown]
